FAERS Safety Report 20922916 (Version 1)
Quarter: 2022Q2

REPORT INFORMATION
  Report Type: Spontaneous
  Country: IN (occurrence: IN)
  Receive Date: 20220607
  Receipt Date: 20220607
  Transmission Date: 20220720
  Serious: Yes (Hospitalization, Other)
  Sender: FDA-Public Use
  Company Number: IN-ATLANTIDE PHARMACEUTICALS AG-2022ATL000041

PATIENT
  Age: 65 Year
  Sex: Female

DRUGS (2)
  1. CEFUROXIME AXETIL [Suspect]
     Active Substance: CEFUROXIME AXETIL
     Indication: Debridement
     Dosage: 500 MG
     Route: 065
  2. LINEZOLID [Suspect]
     Active Substance: LINEZOLID
     Indication: Debridement
     Dosage: 600 MG
     Route: 065

REACTIONS (1)
  - Cutaneous vasculitis [Recovered/Resolved]
